FAERS Safety Report 7690397-1 (Version None)
Quarter: 2011Q3

REPORT INFORMATION
  Report Type: 
  Country: None (occurrence: None)
  Receive Date: 20110818
  Receipt Date: 20110808
  Transmission Date: 20111222
  Serious: No
  Sender: FDA-Public Use
  Company Number: PHHY2011US51801

PATIENT
  Sex: Female
  Weight: 52 kg

DRUGS (1)
  1. RECLAST [Suspect]
     Dosage: 5 MG
     Route: 042

REACTIONS (2)
  - INFUSION SITE EXTRAVASATION [None]
  - OEDEMA PERIPHERAL [None]
